FAERS Safety Report 7027542-7 (Version None)
Quarter: 2010Q4

REPORT INFORMATION
  Report Type: 
  Country: None (occurrence: None)
  Receive Date: 20101004
  Receipt Date: 20100923
  Transmission Date: 20110411
  Serious: Yes (Other)
  Sender: FDA-Public Use
  Company Number: US-ASTRAZENECA-2010SE45628

PATIENT
  Age: 72 Year
  Sex: Male

DRUGS (4)
  1. PULMICORT RESPULES [Suspect]
     Indication: CHRONIC OBSTRUCTIVE PULMONARY DISEASE
     Dosage: 0.5 MG/2 ML
     Route: 055
  2. ATROVENT [Concomitant]
     Dosage: 62.5 EVERY SIX HOURS
     Route: 055
  3. ALBUTEROL [Concomitant]
  4. XOPENEX [Concomitant]

REACTIONS (3)
  - CHRONIC OBSTRUCTIVE PULMONARY DISEASE [None]
  - DRUG DOSE OMISSION [None]
  - NEOPLASM MALIGNANT [None]
